FAERS Safety Report 9847841 (Version 1)
Quarter: 2014Q1

REPORT INFORMATION
  Report Type: Spontaneous
  Country: FR (occurrence: FR)
  Receive Date: 20140128
  Receipt Date: 20140128
  Transmission Date: 20141002
  Serious: Yes (Other)
  Sender: FDA-Public Use
  Company Number: FR-BRISTOL-MYERS SQUIBB COMPANY-20064978

PATIENT
  Age: 68 Year
  Sex: Male

DRUGS (11)
  1. ELISOR TABS 20 MG [Suspect]
     Dates: end: 201206
  2. CARDENSIEL [Concomitant]
  3. OMEPRAZOLE [Concomitant]
  4. PROGRAF [Concomitant]
  5. ZYLORIC [Concomitant]
  6. SINTROM [Concomitant]
  7. UVEDOSE [Concomitant]
  8. LASILIX [Concomitant]
  9. RASILEZ [Concomitant]
  10. INSPRA [Concomitant]
  11. EZETROL [Concomitant]

REACTIONS (1)
  - Interstitial lung disease [Recovering/Resolving]
